FAERS Safety Report 9888212 (Version 2)
Quarter: 2014Q1

REPORT INFORMATION
  Report Type: Spontaneous
  Country: AU (occurrence: AU)
  Receive Date: 20140211
  Receipt Date: 20140304
  Transmission Date: 20141002
  Serious: Yes (Hospitalization)
  Sender: FDA-Public Use
  Company Number: AU-ASTRAZENECA-2014SE07850

PATIENT
  Age: 18322 Day
  Sex: Female

DRUGS (1)
  1. NEXIUM [Suspect]
     Indication: GASTRIC ULCER
     Route: 048
     Dates: start: 20140131, end: 20140201

REACTIONS (3)
  - Spinal pain [Unknown]
  - Arthralgia [Unknown]
  - Intentional drug misuse [Unknown]
